FAERS Safety Report 12355445 (Version 1)
Quarter: 2016Q2

REPORT INFORMATION
  Report Type: Report from Study
  Country: US (occurrence: US)
  Receive Date: 20160511
  Receipt Date: 20160511
  Transmission Date: 20160815
  Serious: Yes (Other)
  Sender: FDA-Public Use
  Company Number: US-AMGEN-USASL2016057696

PATIENT
  Age: 33 Year
  Sex: Female

DRUGS (1)
  1. ENBREL [Suspect]
     Active Substance: ETANERCEPT
     Indication: PRODUCT USED FOR UNKNOWN INDICATION
     Dosage: UNK
     Route: 065

REACTIONS (7)
  - Rheumatoid arthritis [Unknown]
  - Drug effect decreased [Unknown]
  - Fall [Unknown]
  - Hip fracture [Unknown]
  - Hypoaesthesia [Unknown]
  - Spinal disorder [Unknown]
  - Rotator cuff syndrome [Unknown]
